FAERS Safety Report 7805211-0 (Version None)
Quarter: 2011Q4

REPORT INFORMATION
  Report Type: 
  Country: None (occurrence: None)
  Receive Date: 20111010
  Receipt Date: 20110930
  Transmission Date: 20120403
  Serious: Yes (Other)
  Sender: FDA-Public Use
  Company Number: US-ASTRAZENECA-2009UW15404

PATIENT
  Age: 79 Year
  Sex: Female

DRUGS (6)
  1. LIPITOR [Concomitant]
     Dates: start: 20080101
  2. ASPIRIN [Concomitant]
     Dates: start: 20040101
  3. TOPROL-XL [Suspect]
     Route: 048
     Dates: start: 20040101
  4. NVOLIDE [Concomitant]
     Dosage: 300 MG / 12.5
     Dates: start: 20040101
  5. TRAVATAN [Concomitant]
     Dates: start: 20080101
  6. PLAVIX [Concomitant]
     Dates: start: 20040101

REACTIONS (3)
  - DIABETES MELLITUS [None]
  - GLAUCOMA [None]
  - CATARACT [None]
